FAERS Safety Report 7569619-3 (Version None)
Quarter: 2011Q2

REPORT INFORMATION
  Report Type: 
  Country: None (occurrence: None)
  Receive Date: 20110621
  Receipt Date: 20110621
  Transmission Date: 20111010
  Serious: Yes (Life-Threatening)
  Sender: FDA-Public Use
  Company Number: None

PATIENT
  Sex: Male
  Weight: 81.6475 kg

DRUGS (1)
  1. AVODART [Suspect]
     Indication: PROSTATOMEGALY
     Dates: start: 20060101, end: 20100101

REACTIONS (2)
  - PROSTATE CANCER [None]
  - NEOPLASM PROGRESSION [None]
